FAERS Safety Report 5611457-2 (Version None)
Quarter: 2008Q1

REPORT INFORMATION
  Report Type: 
  Country: None (occurrence: None)
  Receive Date: 20080201
  Receipt Date: 20080121
  Transmission Date: 20080703
  Serious: Yes (Other)
  Sender: FDA-Public Use
  Company Number: ES-PFIZER INC-2008006207

PATIENT
  Age: 46 Year
  Sex: Female

DRUGS (2)
  1. VARENICLINE TABLETS [Suspect]
     Indication: SMOKING CESSATION THERAPY
     Route: 048
     Dates: start: 20071001, end: 20070101
  2. ANTIDEPRESSANTS [Concomitant]
     Route: 048

REACTIONS (1)
  - PETIT MAL EPILEPSY [None]
